FAERS Safety Report 10927950 (Version 1)
Quarter: 2015Q1

REPORT INFORMATION
  Report Type: Spontaneous
  Country: None (occurrence: None)
  Receive Date: 20150317
  Receipt Date: 20150317
  Transmission Date: 20150721
  Serious: No
  Sender: FDA-Public Use
  Company Number: None

PATIENT

DRUGS (1)
  1. ALENDRONATE SODIUM 70MG TEVA PHARMACEUTICALS USA [Suspect]
     Active Substance: ALENDRONATE SODIUM
     Indication: OSTEOPOROSIS
     Route: 048
     Dates: start: 20150129, end: 20150313

REACTIONS (2)
  - Eye swelling [None]
  - Peripheral swelling [None]

NARRATIVE: CASE EVENT DATE: 20150313
